FAERS Safety Report 15972472 (Version 1)
Quarter: 2019Q1

REPORT INFORMATION
  Report Type: Spontaneous
  Country: FR (occurrence: FR)
  Receive Date: 20190216
  Receipt Date: 20190216
  Transmission Date: 20190418
  Serious: Yes (Other)
  Sender: FDA-Public Use
  Company Number: FR-TEVA-2019-FR-1012014

PATIENT
  Age: 17 Year
  Sex: Female

DRUGS (2)
  1. APRANAX 550 MG, COMPRIM? PELLICUL? S?CABLE [Suspect]
     Active Substance: NAPROXEN
     Indication: ARTHRALGIA
     Route: 048
     Dates: start: 20181219, end: 20181219
  2. TRAMADOL (CHLORHYDRATE DE) [Suspect]
     Active Substance: TRAMADOL HYDROCHLORIDE
     Indication: ARTHRALGIA
     Dosage: 50 MILLIGRAM DAILY;
     Route: 048
     Dates: start: 20181219, end: 20181219

REACTIONS (2)
  - Vomiting [Recovered/Resolved]
  - Haematemesis [Recovered/Resolved]

NARRATIVE: CASE EVENT DATE: 20181219
